FAERS Safety Report 6283656-0 (Version None)
Quarter: 2009Q3

REPORT INFORMATION
  Report Type: 
  Country: None (occurrence: None)
  Receive Date: 20090724
  Receipt Date: 20090715
  Transmission Date: 20100115
  Serious: Yes (Hospitalization)
  Sender: FDA-Public Use
  Company Number: PHHY2009IT28348

PATIENT
  Age: 52 Year
  Sex: Male

DRUGS (1)
  1. EXELON [Suspect]
     Dosage: 9.5 MG/DAY
     Route: 062
     Dates: start: 20090101

REACTIONS (2)
  - MALAISE [None]
  - NEUROLEPTIC MALIGNANT SYNDROME [None]
